FAERS Safety Report 9540648 (Version 2)
Quarter: 2013Q3

REPORT INFORMATION
  Report Type: Spontaneous
  Country: DE (occurrence: DE)
  Receive Date: 20130920
  Receipt Date: 20130920
  Transmission Date: 20140515
  Serious: Yes (Hospitalization, Disabling, Other)
  Sender: FDA-Public Use
  Company Number: GXKR2013DE002896

PATIENT
  Sex: Female

DRUGS (2)
  1. NAPROXEN HEXAL [Suspect]
     Indication: PAIN
     Dosage: UNK
     Route: 048
     Dates: start: 20130822, end: 20130823
  2. IBUPROFEN [Suspect]
     Indication: PAIN
     Dosage: 400 MG, TID
     Route: 048
     Dates: start: 20130819, end: 20130821

REACTIONS (3)
  - Optic neuritis [Recovering/Resolving]
  - Visual acuity reduced [Recovering/Resolving]
  - Intracranial pressure increased [Recovering/Resolving]
